FAERS Safety Report 8476955 (Version 5)
Quarter: 2012Q4

REPORT INFORMATION
  Report Type: 
  Country: US (occurrence: US)
  Receive Date: 20120326
  Receipt Date: 20120917
  Transmission Date: 20130627
  Serious: Yes (Other)
  Sender: FDA-Public Use
  Company Number: PHEH2012US006246

PATIENT
  Age: 38 Year
  Sex: Male
  Weight: 60.77 kg

DRUGS (3)
  1. GILENYA [Suspect]
     Indication: MULTIPLE SCLEROSIS
     Dosage: 0.5 mg, QD
     Route: 048
     Dates: start: 20110831, end: 20120214
  2. AMPYRA [Concomitant]
     Indication: MULTIPLE SCLEROSIS
     Dosage: 10 UKN, BID
     Route: 048
     Dates: start: 201010
  3. FENTANYL [Concomitant]
     Indication: BACK PAIN

REACTIONS (9)
  - Pancreatic enzymes increased [Recovered/Resolved]
  - Lipase increased [Recovered/Resolved]
  - Hepatic enzyme increased [Recovered/Resolved]
  - Alanine aminotransferase increased [Recovered/Resolved]
  - Heart rate decreased [Unknown]
  - Alpha 1 foetoprotein increased [Recovered/Resolved]
  - Decreased appetite [Unknown]
  - Nausea [Unknown]
  - Abdominal pain [Unknown]
